FAERS Safety Report 15896480 (Version 2)
Quarter: 2019Q1

REPORT INFORMATION
  Report Type: Spontaneous
  Country: US (occurrence: US)
  Receive Date: 20190131
  Receipt Date: 20190313
  Transmission Date: 20190417
  Serious: Yes (Death, Hospitalization)
  Sender: FDA-Public Use
  Company Number: US-PFIZER INC-2019020207

PATIENT
  Age: 92 Year
  Sex: Female
  Weight: 92.97 kg

DRUGS (1)
  1. IBRANCE [Suspect]
     Active Substance: PALBOCICLIB
     Indication: BREAST CANCER
     Dosage: 100 MG, CYCLIC (D1 - 21 Q 28 DAYS)
     Route: 048
     Dates: start: 201811

REACTIONS (2)
  - Death [Fatal]
  - Heart rate abnormal [Unknown]
